FAERS Safety Report 23400960 (Version 1)
Quarter: 2024Q1

REPORT INFORMATION
  Report Type: Spontaneous
  Country: KR (occurrence: KR)
  Receive Date: 20240115
  Receipt Date: 20240115
  Transmission Date: 20240410
  Serious: Yes (Hospitalization, Other)
  Sender: FDA-Public Use
  Company Number: KR-COSETTE-CP2024KR000007

PATIENT
  Sex: Male

DRUGS (1)
  1. BENICAR [Suspect]
     Active Substance: OLMESARTAN MEDOXOMIL
     Indication: Foetal exposure during pregnancy
     Route: 064

REACTIONS (11)
  - Meconium aspiration syndrome [Unknown]
  - Pneumothorax [Unknown]
  - Periventricular leukomalacia [Unknown]
  - Cerebellar haemorrhage [Unknown]
  - Chronic kidney disease [Unknown]
  - Intellectual disability [Unknown]
  - Perinatal brain damage [Unknown]
  - Developmental delay [Unknown]
  - Acute kidney injury [Unknown]
  - Neonatal hypotension [Unknown]
  - Foetal exposure during pregnancy [Unknown]
